FAERS Safety Report 9838573 (Version 1)
Quarter: 2013Q4

REPORT INFORMATION
  Report Type: Spontaneous
  Country: US (occurrence: None)
  Receive Date: 20131206
  Receipt Date: 20131206
  Transmission Date: 20140711
  Serious: Yes (Hospitalization, Other)
  Sender: FDA-Public Use
  Company Number: 384811

PATIENT
  Age: 70 Year
  Sex: Male

DRUGS (7)
  1. NOVOLOG [Suspect]
     Indication: DIABETES MELLITUS
     Dosage: ~70 U QD VIA INSULIN PUMP, SUBCUTAN,.-PUMP
     Dates: start: 20120926
  2. ATENOLOL (ATENOLOL) [Concomitant]
  3. DOXAZOSIN (DOXAZOSIN) [Concomitant]
  4. KLONOPIN (CLONAZEPAM) (TABLETS) [Concomitant]
  5. ARICEPT (DONEPEZIL HYDROCHLORIDE) [Concomitant]
  6. KETOCONAZOLE (KETOCONAZOLE) [Concomitant]
  7. VITAMIN D /00107901/ (ERGOCALCIFEROL) [Concomitant]

REACTIONS (4)
  - Product quality issue [None]
  - Drug ineffective [None]
  - Diabetic ketoacidosis [None]
  - Blood glucose increased [None]
